FAERS Safety Report 25089559 (Version 1)
Quarter: 2025Q1

REPORT INFORMATION
  Report Type: Report from Study
  Country: US (occurrence: US)
  Receive Date: 20250318
  Receipt Date: 20250318
  Transmission Date: 20250409
  Serious: Yes (Other)
  Sender: UCB
  Company Number: US-UCBSA-2025013950

PATIENT
  Sex: Male
  Weight: 58 kg

DRUGS (1)
  1. FINTEPLA [Suspect]
     Active Substance: FENFLURAMINE
     Indication: Severe myoclonic epilepsy of infancy
     Dosage: 7 MILLILITER, 2X/DAY (BID)
     Dates: start: 20201125

REACTIONS (2)
  - Tricuspid valve incompetence [Unknown]
  - Off label use [Unknown]
